FAERS Safety Report 4678538-1 (Version None)
Quarter: 2005Q2

REPORT INFORMATION
  Report Type: 
  Country: None (occurrence: None)
  Receive Date: 20050601
  Receipt Date: 20050525
  Transmission Date: 20051028
  Serious: Yes (Other)
  Sender: FDA-Public Use
  Company Number: FR-JNJFOC-20050506628

PATIENT
  Age: 20 Year
  Sex: Female

DRUGS (3)
  1. IMODIUM [Suspect]
     Route: 049
     Dates: start: 20050520, end: 20050524
  2. IMODIUM [Suspect]
     Indication: DRUG USE FOR UNKNOWN INDICATION
     Route: 049
     Dates: start: 20050520, end: 20050524
  3. PRIMPERAN TAB [Concomitant]

REACTIONS (2)
  - EXTRAPYRAMIDAL DISORDER [None]
  - HYPERTONIA [None]
